FAERS Safety Report 7111259-4 (Version None)
Quarter: 2010Q4

REPORT INFORMATION
  Report Type: 
  Country: None (occurrence: None)
  Receive Date: 20101118
  Receipt Date: 20101111
  Transmission Date: 20110411
  Serious: Yes (Hospitalization, Other)
  Sender: FDA-Public Use
  Company Number: JP-PFIZER INC-2010138882

PATIENT
  Age: 75 Year
  Sex: Male

DRUGS (8)
  1. VFEND [Suspect]
     Indication: SEPSIS
     Dosage: 400 MG, DAY
     Route: 041
     Dates: start: 20101027
  2. METHOTREXATE SODIUM [Suspect]
     Indication: CENTRAL NERVOUS SYSTEM LYMPHOMA
     Dosage: 5000 MG, DAY
     Route: 041
     Dates: start: 20101025, end: 20101025
  3. LEUCOVORIN CALCIUM [Suspect]
     Indication: DRUG DETOXIFICATION
     Dosage: 15 ML X 6 TO 8 TIMES, DAY
     Route: 041
     Dates: start: 20101025, end: 20101028
  4. MEROPENEM TRIHYDRATE [Suspect]
     Indication: SEPSIS
     Dosage: 3 G, DAY
     Route: 041
     Dates: start: 20101027, end: 20101111
  5. MEROPENEM TRIHYDRATE [Suspect]
     Indication: FEBRILE NEUTROPENIA
  6. MEYLON [Suspect]
     Indication: DRUG DETOXIFICATION
     Dosage: 2 TO 3 BOTTLES, A DAY
     Route: 041
     Dates: start: 20101025, end: 20101028
  7. DIAMOX [Suspect]
     Dosage: 250 MG, DAY
     Route: 041
     Dates: start: 20101025, end: 20101028
  8. FULCALIQ [Concomitant]
     Indication: NUTRITIONAL SUPPORT
     Dosage: 1003 ML, DAY
     Route: 041
     Dates: start: 20100927, end: 20101028

REACTIONS (6)
  - BLOOD BETA-D-GLUCAN INCREASED [None]
  - BLOOD POTASSIUM DECREASED [None]
  - DIABETES INSIPIDUS [None]
  - ENDOPHTHALMITIS [None]
  - NEUTROPENIA [None]
  - PYREXIA [None]
